FAERS Safety Report 7311778-1 (Version None)
Quarter: 2011Q1

REPORT INFORMATION
  Report Type: 
  Country: None (occurrence: None)
  Receive Date: 20110224
  Receipt Date: 20110217
  Transmission Date: 20110831
  Serious: Yes (Hospitalization, Other)
  Sender: FDA-Public Use
  Company Number: RO-BAYER-2011-013401

PATIENT
  Sex: Female

DRUGS (2)
  1. YAZ [Suspect]
     Indication: MENSTRUAL CYCLE MANAGEMENT
     Dosage: UNK
     Dates: start: 20110114, end: 20110131
  2. DUPHASTON [Concomitant]
     Indication: MENSTRUATION DELAYED
     Dosage: UNK
     Dates: start: 20110113

REACTIONS (6)
  - VOMITING [None]
  - HEADACHE [None]
  - DIZZINESS [None]
  - SALPINGO-OOPHORITIS [None]
  - METRORRHAGIA [None]
  - DECREASED APPETITE [None]
